FAERS Safety Report 7555596-8 (Version None)
Quarter: 2011Q2

REPORT INFORMATION
  Report Type: 
  Country: None (occurrence: None)
  Receive Date: 20110617
  Receipt Date: 20010312
  Transmission Date: 20111010
  Serious: Yes (Hospitalization)
  Sender: FDA-Public Use
  Company Number: PHEH2001US01106

PATIENT

DRUGS (2)
  1. APPETITE STIMULANTS [Concomitant]
     Dosage: UNK, UNK
  2. EXELON [Suspect]
     Indication: DEMENTIA ALZHEIMER'S TYPE
     Dosage: 3 MG, BID
     Route: 048
     Dates: start: 20001003

REACTIONS (2)
  - SOMNOLENCE [None]
  - CEREBROVASCULAR ACCIDENT [None]
